FAERS Safety Report 5726550-3 (Version None)
Quarter: 2008Q2

REPORT INFORMATION
  Report Type: 
  Country: None (occurrence: None)
  Receive Date: 20080502
  Receipt Date: 20080501
  Transmission Date: 20081010
  Serious: Yes (Hospitalization, Other)
  Sender: FDA-Public Use
  Company Number: FR-RB-001079-08

PATIENT
  Sex: Male

DRUGS (4)
  1. BUPRENORPHINE HCL [Suspect]
     Indication: DRUG THERAPY
     Route: 065
  2. MEPRONIZINE [Concomitant]
     Indication: DRUG USE FOR UNKNOWN INDICATION
     Dosage: DOSE, ROUTE AND FREQUENCY UNKNOWN
     Route: 065
  3. NOCTAMINE [Concomitant]
     Indication: DRUG USE FOR UNKNOWN INDICATION
     Dosage: DOSE,ROUTE AND FREQUENCY UNKNOWN
     Route: 065
  4. XANAX [Concomitant]
     Indication: DRUG USE FOR UNKNOWN INDICATION
     Dosage: DOSE, ROUTE AND FREQUENCY UNKNOWN
     Route: 065

REACTIONS (8)
  - ANXIETY [None]
  - DEPRESSION [None]
  - HOSPITALISATION [None]
  - INTENTIONAL DRUG MISUSE [None]
  - LIVER DISORDER [None]
  - RESPIRATORY DISORDER [None]
  - SUICIDAL IDEATION [None]
  - WITHDRAWAL SYNDROME [None]
